FAERS Safety Report 25838885 (Version 2)
Quarter: 2025Q4

REPORT INFORMATION
  Report Type: Spontaneous
  Country: EU (occurrence: EU)
  Receive Date: 20250924
  Receipt Date: 20251014
  Transmission Date: 20260118
  Serious: Yes (Life-Threatening, Hospitalization)
  Sender: TEVA
  Company Number: EU-TEVA-VS-3373814

PATIENT
  Age: 59 Year
  Sex: Male

DRUGS (12)
  1. LEVETIRACETAM [Suspect]
     Active Substance: LEVETIRACETAM
     Indication: Partial seizures
     Route: 065
  2. THIOPENTAL [Concomitant]
     Active Substance: THIOPENTAL
     Indication: Sedative therapy
     Dosage: OPTIMIZATION BY INCREASING DOSES
     Route: 065
  3. THIOPENTAL [Concomitant]
     Active Substance: THIOPENTAL
     Indication: Sedative therapy
     Route: 065
  4. CYCLOSPORINE [Suspect]
     Active Substance: CYCLOSPORINE
     Indication: Immunosuppressant drug therapy
     Route: 065
  5. MIDAZOLAM [Concomitant]
     Active Substance: MIDAZOLAM
     Indication: Sedative therapy
     Route: 065
  6. MIDAZOLAM [Concomitant]
     Active Substance: MIDAZOLAM
     Indication: Sedative therapy
     Dosage: OPTIMIZATION  BY INCREASING DOSES
     Route: 065
  7. PROPOFOL [Concomitant]
     Active Substance: PROPOFOL
     Indication: Sedative therapy
     Route: 065
  8. PROPOFOL [Concomitant]
     Active Substance: PROPOFOL
     Indication: Sedative therapy
     Dosage: OPTIMIZATION  BY INCREASING DOSES
     Route: 065
  9. PREDNISOLONE [Suspect]
     Active Substance: PREDNISOLONE
     Indication: Immunosuppressant drug therapy
     Route: 065
  10. LACOSAMIDE [Suspect]
     Active Substance: LACOSAMIDE
     Indication: Partial seizures
     Route: 065
  11. NOREPINEPHRINE [Suspect]
     Active Substance: NOREPINEPHRINE
     Indication: Hypotension
     Route: 065
  12. MYCOPHENOLATE MOFETIL [Suspect]
     Active Substance: MYCOPHENOLATE MOFETIL
     Indication: Immunosuppressant drug therapy
     Route: 065

REACTIONS (7)
  - Posterior reversible encephalopathy syndrome [Recovering/Resolving]
  - Generalised tonic-clonic seizure [Recovering/Resolving]
  - Gastroenteritis Escherichia coli [Recovering/Resolving]
  - Status epilepticus [Recovering/Resolving]
  - Haemolytic uraemic syndrome [Recovering/Resolving]
  - Partial seizures [Recovering/Resolving]
  - Drug ineffective [Unknown]
